FAERS Safety Report 12055915 (Version 3)
Quarter: 2016Q4

REPORT INFORMATION
  Report Type: Spontaneous
  Country: US (occurrence: US)
  Receive Date: 20160210
  Receipt Date: 20161102
  Transmission Date: 20170206
  Serious: No
  Sender: FDA-Public Use
  Company Number: US-LUPIN PHARMACEUTICALS INC.-E2B_00004804

PATIENT
  Age: 73 Year
  Sex: Female
  Weight: 56.3 kg

DRUGS (2)
  1. LISINOPRIL TABLETS USP 10MG [Suspect]
     Active Substance: LISINOPRIL
     Indication: HYPERTENSION
     Route: 048
     Dates: start: 20151028, end: 201511
  2. LISINOPRIL TABLETS USP 20MG [Suspect]
     Active Substance: LISINOPRIL
     Indication: HYPERTENSION
     Route: 048
     Dates: start: 201511, end: 201601

REACTIONS (5)
  - Erythema of eyelid [Not Recovered/Not Resolved]
  - Rash [Not Recovered/Not Resolved]
  - Chloasma [Not Recovered/Not Resolved]
  - Hypertension [Recovered/Resolved]
  - Drug ineffective [Unknown]

NARRATIVE: CASE EVENT DATE: 201511
